FAERS Safety Report 10498680 (Version 2)
Quarter: 2014Q4

REPORT INFORMATION
  Report Type: Spontaneous
  Country: US (occurrence: US)
  Receive Date: 20141006
  Receipt Date: 20141107
  Transmission Date: 20150528
  Serious: Yes (Other)
  Sender: FDA-Public Use
  Company Number: US-BAYER-2014-145951

PATIENT
  Age: 29 Year
  Sex: Female
  Weight: 53.52 kg

DRUGS (2)
  1. MIRENA [Suspect]
     Active Substance: LEVONORGESTREL
     Indication: CONTRACEPTION
     Dosage: 20 MCG/24HR, CONT
     Route: 015
     Dates: start: 201406, end: 20141016
  2. ADVIL [Concomitant]
     Active Substance: IBUPROFEN
     Indication: INTRA-UTERINE CONTRACEPTIVE DEVICE INSERTION
     Dosage: 3 DF, UNK
     Dates: start: 201406, end: 201406

REACTIONS (10)
  - Genital haemorrhage [Recovered/Resolved]
  - Procedural pain [None]
  - Migraine [Recovered/Resolved]
  - Device difficult to use [None]
  - Abdominal pain lower [Recovered/Resolved]
  - Mood swings [None]
  - Dizziness [Recovered/Resolved]
  - Procedural pain [None]
  - Device breakage [None]
  - Nausea [None]

NARRATIVE: CASE EVENT DATE: 2014
